FAERS Safety Report 9173525 (Version 1)
Quarter: 2013Q1

REPORT INFORMATION
  Report Type: Spontaneous
  Country: US (occurrence: None)
  Receive Date: 20130318
  Receipt Date: 20130318
  Transmission Date: 20140127
  Serious: Yes (Other)
  Sender: FDA-Public Use
  Company Number: AXC-2013-000092

PATIENT
  Age: 6 Year
  Sex: Female

DRUGS (3)
  1. MESALAMINE [Suspect]
     Indication: COLITIS ULCERATIVE
     Route: 054
  2. AZATHIOPRINE (AZATHIOPRINE) [Concomitant]
  3. ALLOPURINOL [Concomitant]

REACTIONS (3)
  - Colitis ulcerative [None]
  - Clostridium difficile infection [None]
  - No therapeutic response [None]
